FAERS Safety Report 6850739-3 (Version None)
Quarter: 2010Q3

REPORT INFORMATION
  Report Type: 
  Country: None (occurrence: None)
  Receive Date: 20100716
  Receipt Date: 20071017
  Transmission Date: 20110219
  Serious: No
  Sender: FDA-Public Use
  Company Number: US-PFIZER INC-2007089353

PATIENT
  Sex: Female
  Weight: 77.1 kg

DRUGS (3)
  1. CHANTIX [Suspect]
     Indication: SMOKING CESSATION THERAPY
     Dates: start: 20070101, end: 20071012
  2. GLUCOPHAGE [Suspect]
  3. ACTOS [Concomitant]

REACTIONS (3)
  - BACK PAIN [None]
  - PAIN [None]
  - POLLAKIURIA [None]
